FAERS Safety Report 10120620 (Version 5)
Quarter: 2014Q2

REPORT INFORMATION
  Report Type: Spontaneous
  Country: US (occurrence: US)
  Receive Date: 20140425
  Receipt Date: 20140630
  Transmission Date: 20141212
  Serious: Yes (Hospitalization)
  Sender: FDA-Public Use
  Company Number: US-ACTELION-A-US2014-97657

PATIENT
  Age: 36 Year
  Sex: Female

DRUGS (3)
  1. VELETRI [Suspect]
     Indication: PULMONARY ARTERIAL HYPERTENSION
     Dosage: 6.5 NG/KG, PER MIN
     Route: 042
     Dates: start: 20140408
  2. REVATIO [Concomitant]
  3. WARFARIN [Concomitant]

REACTIONS (10)
  - Dehydration [Unknown]
  - Blood potassium increased [Unknown]
  - Vomiting [Unknown]
  - Pulmonary arterial hypertension [Unknown]
  - Dyspnoea [Unknown]
  - Fatigue [Unknown]
  - Nausea [Unknown]
  - Flushing [Unknown]
  - Pain in jaw [Unknown]
  - Oedema peripheral [Unknown]
